FAERS Safety Report 26034295 (Version 1)
Quarter: 2025Q4

REPORT INFORMATION
  Report Type: Spontaneous
  Country: US (occurrence: None)
  Receive Date: 20251111
  Receipt Date: 20251111
  Transmission Date: 20260118
  Serious: Yes (Hospitalization)
  Sender: FDA-CTU
  Company Number: None

PATIENT
  Age: 58 Year
  Sex: Female

DRUGS (1)
  1. LENALIDOMIDE [Suspect]
     Active Substance: LENALIDOMIDE
     Indication: Follicular lymphoma stage II
     Dosage: 20MG DAILY FOR 21 DAYS  ON, 7 D OFF?

REACTIONS (4)
  - Cystitis [None]
  - Urinary tract infection [None]
  - Blood potassium decreased [None]
  - Therapy interrupted [None]
